FAERS Safety Report 4610682-7 (Version None)
Quarter: 2005Q2

REPORT INFORMATION
  Report Type: 
  Country: None (occurrence: None)
  Receive Date: 20050228
  Receipt Date: 20040607
  Transmission Date: 20051028
  Serious: Yes (Hospitalization)
  Sender: FDA-Public Use
  Company Number: 206791

PATIENT
  Age: 10 Year
  Sex: Male
  Weight: 62.7 kg

DRUGS (4)
  1. NUTROPIN [Suspect]
     Indication: PRECOCIOUS PUBERTY
     Dosage: 2.5 MG, QD; SUBCUTANEOUS
     Route: 058
     Dates: start: 20000815, end: 20040520
  2. CORTEF [Concomitant]
  3. LUPRON [Concomitant]
  4. SOLU-CORTEF [Concomitant]

REACTIONS (1)
  - SLIPPED FEMORAL EPIPHYSIS [None]
